FAERS Safety Report 10152477 (Version 4)
Quarter: 2014Q2

REPORT INFORMATION
  Report Type: Spontaneous
  Country: GB (occurrence: GB)
  Receive Date: 20140505
  Receipt Date: 20140519
  Transmission Date: 20141212
  Serious: Yes (Other)
  Sender: FDA-Public Use
  Company Number: GB-PFIZER INC-2013255436

PATIENT
  Age: 48 Year
  Sex: Male

DRUGS (3)
  1. DEPO-MEDRONE [Suspect]
     Indication: GOUT
     Dosage: 40 MG, 3X/DAY
     Dates: start: 20130516, end: 20130516
  2. DEPO-MEDRONE [Suspect]
     Dosage: 40 MG, 3X/DAY
     Dates: start: 20130530, end: 20130530
  3. DEPO-MEDRONE [Suspect]
     Dosage: 40 MG, 3X/DAY
     Dates: start: 20130613, end: 20130613

REACTIONS (7)
  - Wrong drug administered [Unknown]
  - Muscle atrophy [Unknown]
  - Monoplegia [Unknown]
  - Suspected counterfeit product [Unknown]
  - Arthropathy [Unknown]
  - Peripheral swelling [Unknown]
  - Joint swelling [Unknown]
